FAERS Safety Report 20524116 (Version 2)
Quarter: 2023Q1

REPORT INFORMATION
  Report Type: Report from Study
  Country: US (occurrence: US)
  Receive Date: 20220228
  Receipt Date: 20230303
  Transmission Date: 20230418
  Serious: No
  Sender: FDA-Public Use
  Company Number: US-ORG100014127-2021001347

PATIENT
  Age: 78 Year
  Sex: Male

DRUGS (2)
  1. METOPIRONE [Suspect]
     Active Substance: METYRAPONE
     Indication: Pituitary-dependent Cushing^s syndrome
     Dosage: 500 MG 03 TIMES A DAY
     Route: 048
     Dates: start: 20201216
  2. METOPIRONE [Suspect]
     Active Substance: METYRAPONE
     Indication: Pituitary-dependent Cushing^s syndrome
     Dosage: UPTITRATED FROM 02 CAPS 04 TIMES/DAY TO 03 CAPS IN MORNING, 02 AT LUNCH, 02 AT DINNER, 03 AT BEDTIME
     Route: 048
     Dates: end: 20230108

REACTIONS (1)
  - Off label use [Unknown]

NARRATIVE: CASE EVENT DATE: 20201216
